FAERS Safety Report 9761109 (Version 1)
Quarter: 2013Q4

REPORT INFORMATION
  Report Type: Spontaneous
  Country: US (occurrence: US)
  Receive Date: 20131216
  Receipt Date: 20131216
  Transmission Date: 20140711
  Serious: No
  Sender: FDA-Public Use
  Company Number: US-BIOGENIDEC-2013BI104920

PATIENT
  Age: 40 Year
  Sex: Female
  Weight: 94 kg

DRUGS (8)
  1. TECFIDERA [Suspect]
     Indication: MULTIPLE SCLEROSIS
     Route: 048
  2. TECFIDERA [Suspect]
     Indication: MULTIPLE SCLEROSIS
     Route: 048
  3. LAMICTAL [Concomitant]
  4. LISINOPRIL [Concomitant]
  5. LEVOTHYROXIN [Concomitant]
  6. OMEPRAZOLE [Concomitant]
  7. VITAMIN D3 [Concomitant]
  8. FLAX SEED [Concomitant]

REACTIONS (1)
  - Abdominal pain upper [Unknown]
